FAERS Safety Report 24194471 (Version 1)
Quarter: 2024Q3

REPORT INFORMATION
  Report Type: Spontaneous
  Country: FR (occurrence: FR)
  Receive Date: 20240809
  Receipt Date: 20240809
  Transmission Date: 20241017
  Serious: Yes (Death, Congenital Anomaly)
  Sender: PFIZER
  Company Number: None

PATIENT

DRUGS (2)
  1. METHOTREXATE SODIUM [Suspect]
     Active Substance: METHOTREXATE SODIUM
     Indication: Rhupus syndrome
     Dosage: 20 MG, WEEKLY
     Route: 064
  2. PLAQUENIL [Suspect]
     Active Substance: HYDROXYCHLOROQUINE SULFATE
     Indication: Rhupus syndrome
     Dosage: UNK
     Route: 064

REACTIONS (3)
  - Maternal exposure during pregnancy [Fatal]
  - Talipes [Fatal]
  - Hemivertebra [Fatal]
